FAERS Safety Report 23220063 (Version 2)
Quarter: 2025Q3

REPORT INFORMATION
  Report Type: Report from Study
  Country: US (occurrence: US)
  Receive Date: 20231122
  Receipt Date: 20250801
  Transmission Date: 20251021
  Serious: Yes (Hospitalization)
  Sender: ROCHE
  Company Number: US-ROCHE-3462216

PATIENT
  Age: 55 Year
  Sex: Female

DRUGS (1)
  1. OCREVUS [Suspect]
     Active Substance: OCRELIZUMAB
     Indication: Relapsing multiple sclerosis
     Dosage: PATIENT RECEIVED FURTHER DOSES OF INFUSION ON 19/APR/2022, 31/OCT/2022, 17/APR/2023,18/OCT/2024.
     Route: 042
     Dates: start: 20180501

REACTIONS (2)
  - COVID-19 [Unknown]
  - Immunodeficiency [Recovered/Resolved]

NARRATIVE: CASE EVENT DATE: 20230901
